FAERS Safety Report 5051701-6 (Version None)
Quarter: 2006Q3

REPORT INFORMATION
  Report Type: 
  Country: None (occurrence: None)
  Receive Date: 20060710
  Receipt Date: 20060627
  Transmission Date: 20061208
  Serious: Yes (Hospitalization)
  Sender: FDA-Public Use
  Company Number: 2006BI003540

PATIENT
  Age: 47 Year
  Sex: Female
  Weight: 85.2762 kg

DRUGS (2)
  1. AVONEX [Suspect]
     Indication: MULTIPLE SCLEROSIS
     Dosage: 30 UG;QW;IM
     Route: 030
     Dates: start: 20060207
  2. ACETAMINOPHEN [Concomitant]

REACTIONS (1)
  - OVERDOSE [None]
